FAERS Safety Report 4805329-0 (Version None)
Quarter: 2005Q4

REPORT INFORMATION
  Report Type: 
  Country: None (occurrence: None)
  Receive Date: 20051018
  Receipt Date: 20051005
  Transmission Date: 20060501
  Serious: Yes (Death)
  Sender: FDA-Public Use
  Company Number: B0396343A

PATIENT
  Age: 49 Year
  Sex: Male

DRUGS (2)
  1. MYLERAN [Suspect]
  2. CYCLOPHOSPHAMIDE [Suspect]

REACTIONS (5)
  - ASCITES [None]
  - ENCEPHALOPATHY [None]
  - INTERNATIONAL NORMALISED RATIO INCREASED [None]
  - MULTI-ORGAN FAILURE [None]
  - VENOOCCLUSIVE LIVER DISEASE [None]
